FAERS Safety Report 6141695-4 (Version None)
Quarter: 2009Q2

REPORT INFORMATION
  Report Type: 
  Country: None (occurrence: None)
  Receive Date: 20090402
  Receipt Date: 20090325
  Transmission Date: 20091009
  Serious: Yes (Other)
  Sender: FDA-Public Use
  Company Number: GB-BAUSCH-2009BL000819

PATIENT
  Age: 2 Month
  Sex: Male

DRUGS (2)
  1. PREDNISOLONE [Suspect]
     Indication: XANTHOGRANULOMA
  2. VINBLASTINE [Suspect]
     Indication: XANTHOGRANULOMA

REACTIONS (8)
  - ABDOMINAL MASS [None]
  - ATELECTASIS [None]
  - CENTRAL NERVOUS SYSTEM LESION [None]
  - HEPATIC NEOPLASM [None]
  - IDIOSYNCRATIC DRUG REACTION [None]
  - IRRITABILITY [None]
  - NEUTROPENIA [None]
  - SKIN NODULE [None]
